FAERS Safety Report 5113425-6 (Version None)
Quarter: 2006Q3

REPORT INFORMATION
  Report Type: 
  Country: None (occurrence: None)
  Receive Date: 20060921
  Receipt Date: 20060921
  Transmission Date: 20061208
  Serious: Yes (Hospitalization)
  Sender: FDA-Public Use
  Company Number: None

PATIENT
  Age: 71 Year
  Sex: Male
  Weight: 104.6 kg

DRUGS (1)
  1. BACLOFEN [Suspect]
     Indication: TREMOR
     Dosage: 10MG   BID   PO
     Route: 048

REACTIONS (8)
  - ABDOMINAL PAIN [None]
  - ASTHENIA [None]
  - BLADDER DISTENSION [None]
  - DEMENTIA [None]
  - DEPRESSED LEVEL OF CONSCIOUSNESS [None]
  - FATIGUE [None]
  - MYOCLONUS [None]
  - TREMOR [None]
